FAERS Safety Report 7121912-4 (Version None)
Quarter: 2010Q4

REPORT INFORMATION
  Report Type: 
  Country: None (occurrence: None)
  Receive Date: 20101124
  Receipt Date: 20101115
  Transmission Date: 20110411
  Serious: Yes (Life-Threatening, Hospitalization, Other)
  Sender: FDA-Public Use
  Company Number: FR-PFIZER INC-2010140040

PATIENT
  Age: 24 Year
  Sex: Female

DRUGS (22)
  1. ATARAX [Suspect]
     Indication: AUTISM
     Dosage: 200 MG, DAILY
     Route: 048
     Dates: start: 20100913, end: 20100914
  2. ATARAX [Suspect]
     Dosage: 100 MG, 3X/DAY
     Route: 048
     Dates: start: 20100915, end: 20100924
  3. TEGRETOL [Suspect]
     Indication: AUTISM
     Dosage: 200 MG, 3X/DAY
     Route: 048
     Dates: start: 20100801, end: 20100830
  4. TEGRETOL [Suspect]
     Dosage: 200MG X 3
     Route: 048
     Dates: start: 20100830, end: 20100901
  5. TEGRETOL [Suspect]
     Dosage: 200 MG, 2X/DAY
     Route: 048
     Dates: start: 20100920, end: 20100923
  6. TEGRETOL [Suspect]
     Dosage: 200 MG, 1X/DAY
  7. LOXAPAC [Suspect]
     Indication: AUTISM
     Dosage: 500 MG, 1X/DAY
     Dates: start: 20100801, end: 20100901
  8. LOXAPAC [Suspect]
     Dosage: 90 ORAL DROPS
     Route: 048
     Dates: start: 20100911, end: 20100911
  9. LOXAPAC [Suspect]
     Dosage: 60 ORAL DROPS
     Route: 048
     Dates: start: 20100912, end: 20100912
  10. LOXAPAC [Suspect]
     Dosage: 50 MG, UNK
     Route: 030
     Dates: start: 20100922, end: 20100923
  11. THERALENE [Suspect]
     Indication: AUTISM
     Dosage: 50 ORAL DROPS DAILY
     Route: 048
     Dates: start: 20100913, end: 20100924
  12. RISPERDAL [Suspect]
     Indication: AUTISM
     Dosage: 8 MG, UNK
     Route: 048
     Dates: start: 20100914, end: 20100919
  13. RISPERDAL [Suspect]
     Dosage: 2 MG, UNK
     Route: 048
     Dates: start: 20100921, end: 20100921
  14. RISPERDAL [Suspect]
     Dosage: 4 MG, UNK
     Route: 048
     Dates: start: 20100922, end: 20100924
  15. ORBENINE [Suspect]
     Indication: SKIN LESION
     Dosage: UNK
     Dates: start: 20100917
  16. LEPTICUR [Suspect]
     Indication: MUSCLE CONTRACTURE
     Dosage: 10 MG, UNK
     Dates: start: 20100918
  17. LEPTICUR [Suspect]
     Dosage: 10 MG, 3X/DAY
  18. MELATONIN [Concomitant]
     Indication: AUTISM
     Dosage: 1 TABLET
     Route: 048
     Dates: start: 20100913, end: 20100913
  19. MELATONIN [Concomitant]
     Dosage: 2 TABLETS DAILY
     Route: 048
     Dates: start: 20100914, end: 20100924
  20. ZYPREXA [Concomitant]
     Dosage: 40 MG, UNK
     Dates: start: 20100801
  21. DEPAKOTE [Concomitant]
     Dosage: UNK
     Dates: start: 20100801
  22. RIVOTRIL [Concomitant]
     Dosage: UNK
     Dates: start: 20100801

REACTIONS (3)
  - MUSCLE CONTRACTURE [None]
  - NEUROLEPTIC MALIGNANT SYNDROME [None]
  - SKIN LESION [None]
